FAERS Safety Report 4894548-3 (Version None)
Quarter: 2006Q1

REPORT INFORMATION
  Report Type: 
  Country: None (occurrence: None)
  Receive Date: 20060127
  Receipt Date: 20051202
  Transmission Date: 20060701
  Serious: Yes (Hospitalization, Other)
  Sender: FDA-Public Use
  Company Number: US-MERCK-0512USA00415

PATIENT
  Age: 2 Year
  Sex: Male
  Weight: 11 kg

DRUGS (3)
  1. SINGULAIR [Suspect]
     Indication: RHINITIS ALLERGIC
     Route: 048
     Dates: start: 20050101, end: 20051129
  2. NASONEX [Concomitant]
     Indication: RHINITIS ALLERGIC
     Route: 055
  3. DIMETAPP (NEW FORMULA) [Concomitant]
     Indication: RHINORRHOEA
     Route: 048

REACTIONS (1)
  - ANAEMIA [None]
